FAERS Safety Report 12788561 (Version 1)
Quarter: 2016Q3

REPORT INFORMATION
  Report Type: Report from Study
  Country: BR (occurrence: BR)
  Receive Date: 20160928
  Receipt Date: 20160928
  Transmission Date: 20161109
  Serious: Yes (Other)
  Sender: FDA-Public Use
  Company Number: PHHY2016BR132710

PATIENT
  Sex: Female
  Weight: 56 kg

DRUGS (1)
  1. ONBREZ BREEZHALER [Suspect]
     Active Substance: INDACATEROL
     Indication: EMPHYSEMA
     Dosage: 150 UG, QD
     Route: 065

REACTIONS (3)
  - Quadriplegia [Recovering/Resolving]
  - Post procedural complication [Recovering/Resolving]
  - Abasia [Unknown]
